FAERS Safety Report 4927964-1 (Version None)
Quarter: 2006Q1

REPORT INFORMATION
  Report Type: 
  Country: None (occurrence: None)
  Receive Date: 20060223
  Receipt Date: 20060210
  Transmission Date: 20060701
  Serious: Yes (Other)
  Sender: FDA-Public Use
  Company Number: 2006021575

PATIENT
  Age: 68 Year
  Sex: Male

DRUGS (1)
  1. LIPITOR [Suspect]
     Indication: ILL-DEFINED DISORDER
     Dosage: (20 MG), ORAL
     Route: 048

REACTIONS (4)
  - INCORRECT DOSE ADMINISTERED [None]
  - MYALGIA [None]
  - TRANSIENT ISCHAEMIC ATTACK [None]
  - VASCULAR STENOSIS [None]
